FAERS Safety Report 10880959 (Version 2)
Quarter: 2015Q1

REPORT INFORMATION
  Report Type: Spontaneous
  Country: DE (occurrence: None)
  Receive Date: 20150225
  Receipt Date: 20150309
  Transmission Date: 20150721
  Serious: Yes (Disabling, Other)
  Sender: FDA-Public Use
  Company Number: 2015-10728

PATIENT
  Sex: Female

DRUGS (2)
  1. EYLEA [Suspect]
     Active Substance: AFLIBERCEPT
     Indication: PRODUCT USED FOR UNKNOWN INDICATION
     Dates: start: 201502
  2. LUCENTIS (RANIBIZUMAB) [Concomitant]

REACTIONS (2)
  - Visual impairment [None]
  - Vision blurred [None]

NARRATIVE: CASE EVENT DATE: 201502
